FAERS Safety Report 11781605 (Version 2)
Quarter: 2015Q4

REPORT INFORMATION
  Report Type: Spontaneous
  Country: JP (occurrence: JP)
  Receive Date: 20151126
  Receipt Date: 20151130
  Transmission Date: 20160305
  Serious: Yes (Hospitalization)
  Sender: FDA-Public Use
  Company Number: JP-JNJFOC-20151122823

PATIENT
  Age: 62 Year
  Sex: Male

DRUGS (4)
  1. XARELTO [Suspect]
     Active Substance: RIVAROXABAN
     Indication: CEREBROVASCULAR ACCIDENT PROPHYLAXIS
     Route: 048
     Dates: start: 2014
  2. XARELTO [Suspect]
     Active Substance: RIVAROXABAN
     Indication: ATRIAL FIBRILLATION
     Route: 048
     Dates: start: 2014
  3. XARELTO [Suspect]
     Active Substance: RIVAROXABAN
     Indication: CEREBROVASCULAR ACCIDENT PROPHYLAXIS
     Route: 048
     Dates: start: 201511
  4. XARELTO [Suspect]
     Active Substance: RIVAROXABAN
     Indication: ATRIAL FIBRILLATION
     Route: 048
     Dates: start: 201511

REACTIONS (1)
  - Cerebral infarction [Recovered/Resolved]
